FAERS Safety Report 15639656 (Version 1)
Quarter: 2018Q4

REPORT INFORMATION
  Report Type: Spontaneous
  Country: US (occurrence: US)
  Receive Date: 20181120
  Receipt Date: 20181120
  Transmission Date: 20190205
  Serious: No
  Sender: FDA-Public Use
  Company Number: US-ENDO PHARMACEUTICALS INC-2018-036130

PATIENT
  Age: 55 Year
  Sex: Male

DRUGS (1)
  1. ALPRAZOLAM TABLETS 0.25 MG [Suspect]
     Active Substance: ALPRAZOLAM
     Indication: POST-TRAUMATIC STRESS DISORDER
     Dosage: 0.25 MG, 2-3 TIMES A DAY AS NEEDED
     Route: 048
     Dates: start: 2015

REACTIONS (4)
  - Dysgeusia [Unknown]
  - Product substitution issue [Unknown]
  - Head discomfort [Unknown]
  - Drug effect decreased [Unknown]

NARRATIVE: CASE EVENT DATE: 201805
